FAERS Safety Report 9267384 (Version 1)
Quarter: 2013Q2

REPORT INFORMATION
  Report Type: Spontaneous
  Country: US (occurrence: US)
  Receive Date: 20130502
  Receipt Date: 20130502
  Transmission Date: 20140414
  Serious: No
  Sender: FDA-Public Use
  Company Number: US-BAYER-2013-054892

PATIENT
  Age: 37 Year
  Sex: Male

DRUGS (4)
  1. NAPROXEN SODIUM ({= 220 MG) [Suspect]
  2. VITAMIN D [Concomitant]
     Dosage: 50000 U, Q2WK
  3. AMITRIPTYLINE [Concomitant]
  4. MILNACIPRAN [Concomitant]

REACTIONS (1)
  - Abdominal discomfort [None]
